FAERS Safety Report 9149893 (Version 1)
Quarter: 2013Q1

REPORT INFORMATION
  Report Type: Spontaneous
  Country: US (occurrence: US)
  Receive Date: 20130308
  Receipt Date: 20130308
  Transmission Date: 20140127
  Serious: Yes (Other)
  Sender: FDA-Public Use
  Company Number: US-BAYER-2013-026899

PATIENT
  Age: 94 Year
  Sex: Female

DRUGS (3)
  1. BAYER ASPIRIN REGIMEN ADULT LOW STRENGTH [Suspect]
     Indication: ISCHAEMIC HEART DISEASE PROPHYLAXIS
     Dosage: 1 DF, QD
     Route: 048
  2. ALEVE CAPLET/TABLET,MIDOL EXTENDED RELIEF CAPLET [Concomitant]
     Dosage: 1 DF, PRN
     Route: 048
  3. CORTISONE [Concomitant]

REACTIONS (1)
  - Haemorrhage subcutaneous [Not Recovered/Not Resolved]
